FAERS Safety Report 5683531-6 (Version None)
Quarter: 2008Q1

REPORT INFORMATION
  Report Type: 
  Country: None (occurrence: None)
  Receive Date: 20080326
  Receipt Date: 20080313
  Transmission Date: 20080703
  Serious: Yes (Hospitalization, Other)
  Sender: FDA-Public Use
  Company Number: KADN20080019

PATIENT
  Age: 93 Year
  Sex: Male

DRUGS (1)
  1. KADIAN [Suspect]
     Indication: CANCER PAIN
     Dosage: 20 MG, 4 TIMES DAILY, ORAL
     Route: 048
     Dates: start: 20070807, end: 20070808

REACTIONS (4)
  - ANOREXIA [None]
  - LIVER DISORDER [None]
  - PYREXIA [None]
  - RENAL DISORDER [None]
